FAERS Safety Report 7503746-1 (Version None)
Quarter: 2011Q2

REPORT INFORMATION
  Report Type: 
  Country: None (occurrence: None)
  Receive Date: 20110525
  Receipt Date: 20110506
  Transmission Date: 20111010
  Serious: No
  Sender: FDA-Public Use
  Company Number: US-B.I. PHARMACEUTICALS,INC./RIDGEFIELD-2011-BP-05157BP

PATIENT
  Age: 85 Year
  Sex: Male

DRUGS (5)
  1. HYDROCHLOROTHIAZIDE [Concomitant]
  2. CARDURA [Concomitant]
  3. PRADAXA [Suspect]
     Indication: ATRIAL FIBRILLATION
     Dosage: 300 MG
     Route: 048
     Dates: start: 20101101
  4. QUESTRAN [Concomitant]
  5. LISINOPRIL [Concomitant]

REACTIONS (4)
  - SINUSITIS [None]
  - HAEMORRHAGE [None]
  - DYSPEPSIA [None]
  - BLOODY DISCHARGE [None]
